FAERS Safety Report 18312499 (Version 1)
Quarter: 2020Q3

REPORT INFORMATION
  Report Type: Spontaneous
  Country: GB (occurrence: GB)
  Receive Date: 20200925
  Receipt Date: 20200925
  Transmission Date: 20201103
  Serious: Yes (Other)
  Sender: FDA-Public Use
  Company Number: GB-TEVA-2020-GB-1830388

PATIENT
  Age: 47 Year
  Sex: Male
  Weight: 94 kg

DRUGS (3)
  1. MYCOPHENOLATE MOFETIL. [Concomitant]
     Active Substance: MYCOPHENOLATE MOFETIL
     Dosage: UNIT DOSE 1000MG
  2. CLARITHROMYCIN. [Suspect]
     Active Substance: CLARITHROMYCIN
     Indication: LOWER RESPIRATORY TRACT INFECTION
     Dosage: UNIT DOSE 1000MG
     Route: 048
     Dates: start: 20190114, end: 20190121
  3. TACROLIMUS. [Interacting]
     Active Substance: TACROLIMUS
     Dosage: UNIT DOSE 2MG

REACTIONS (3)
  - Drug level increased [Unknown]
  - Labelled drug-drug interaction medication error [Unknown]
  - Drug interaction [Recovered/Resolved]

NARRATIVE: CASE EVENT DATE: 20190121
